FAERS Safety Report 4668120-4 (Version None)
Quarter: 2005Q2

REPORT INFORMATION
  Report Type: 
  Country: None (occurrence: None)
  Receive Date: 20050521
  Receipt Date: 20041221
  Transmission Date: 20051028
  Serious: Yes (Other)
  Sender: FDA-Public Use
  Company Number: PHEH2004US13549

PATIENT
  Age: 74 Year
  Sex: Male

DRUGS (3)
  1. ZOMETA [Suspect]
     Indication: PROPHYLAXIS
     Dosage: 4 MG, QMO
     Route: 042
     Dates: start: 20030701, end: 20041124
  2. DEXAMETHASONE [Concomitant]
     Indication: PROPHYLAXIS OF NAUSEA AND VOMITING
     Dosage: 8 MG, QMO
     Route: 042
     Dates: start: 20030826, end: 20040831
  3. MITOXANTRONE [Concomitant]
     Indication: PROSTATE CANCER
     Dosage: 9 MG/M2, QMO
     Dates: start: 20030826, end: 20040831

REACTIONS (5)
  - BONE DISORDER [None]
  - BONE SWELLING [None]
  - HEADACHE [None]
  - OSTEONECROSIS [None]
  - PAIN IN JAW [None]
